FAERS Safety Report 12470804 (Version 1)
Quarter: 2016Q2

REPORT INFORMATION
  Report Type: Spontaneous
  Country: US (occurrence: None)
  Receive Date: 20160615
  Receipt Date: 20160615
  Transmission Date: 20160815
  Serious: No
  Sender: FDA-Public Use
  Company Number: None

PATIENT

DRUGS (3)
  1. POTASSIUM CHLORIDE EXTENDED RELEASE TABLET [Suspect]
     Active Substance: POTASSIUM CHLORIDE
     Route: 048
  2. POTASSIUM CITRATE. [Suspect]
     Active Substance: POTASSIUM CITRATE
  3. POTASSIUM CHLORIDE 10MEQ (PREMIX SOLUTION) [Suspect]
     Active Substance: POTASSIUM CHLORIDE
     Dosage: LIQUID
     Route: 048

REACTIONS (2)
  - Drug dispensing error [None]
  - Incorrect dose administered [None]
